FAERS Safety Report 7418008-0 (Version None)
Quarter: 2011Q2

REPORT INFORMATION
  Report Type: 
  Country: None (occurrence: None)
  Receive Date: 20110415
  Receipt Date: 20100702
  Transmission Date: 20111010
  Serious: No
  Sender: FDA-Public Use
  Company Number: US-ASTRAZENECA-2010SE31000

PATIENT
  Age: 62 Year
  Sex: Female

DRUGS (1)
  1. ZESTORETIC [Suspect]
     Route: 048
     Dates: start: 20060301, end: 20100601

REACTIONS (2)
  - TRANSIENT GLOBAL AMNESIA [None]
  - BLOOD POTASSIUM DECREASED [None]
